FAERS Safety Report 13558955 (Version 1)
Quarter: 2017Q2

REPORT INFORMATION
  Report Type: Spontaneous
  Country: US (occurrence: US)
  Receive Date: 20170518
  Receipt Date: 20170518
  Transmission Date: 20170830
  Serious: Yes (Other)
  Sender: FDA-Public Use
  Company Number: US-AMGEN-USASP2017072849

PATIENT

DRUGS (2)
  1. REPATHA [Suspect]
     Active Substance: EVOLOCUMAB
     Indication: ARTERIOSCLEROSIS
     Dosage: 140 MG, Q4WK
     Route: 065
     Dates: start: 201702
  2. REPATHA [Suspect]
     Active Substance: EVOLOCUMAB
     Dosage: 140 MG, Q2WK
     Route: 065
     Dates: start: 201702, end: 201703

REACTIONS (3)
  - Rhabdomyolysis [Unknown]
  - Cardiac failure [Unknown]
  - Sinusitis [Unknown]

NARRATIVE: CASE EVENT DATE: 2017
